FAERS Safety Report 8518333-6 (Version None)
Quarter: 2012Q3

REPORT INFORMATION
  Report Type: 
  Country: None (occurrence: None)
  Receive Date: 20120718
  Receipt Date: 20120201
  Transmission Date: 20120928
  Serious: No
  Sender: FDA-Public Use
  Company Number: US-BRISTOL-MYERS SQUIBB COMPANY-16377848

PATIENT
  Sex: Female

DRUGS (2)
  1. COUMADIN [Suspect]
     Dates: start: 19950101
  2. WARFARIN SODIUM [Suspect]

REACTIONS (2)
  - GASTROINTESTINAL DISORDER [None]
  - INTERNATIONAL NORMALISED RATIO ABNORMAL [None]
